FAERS Safety Report 7649943-6 (Version None)
Quarter: 2011Q3

REPORT INFORMATION
  Report Type: 
  Country: None (occurrence: None)
  Receive Date: 20110802
  Receipt Date: 20110728
  Transmission Date: 20111222
  Serious: Yes (Other)
  Sender: FDA-Public Use
  Company Number: CA-BRISTOL-MYERS SQUIBB COMPANY-15936362

PATIENT
  Age: 83 Year
  Sex: Female
  Weight: 91 kg

DRUGS (6)
  1. RAMIPRIL [Concomitant]
  2. LEVOTHYROXINE SODIUM [Concomitant]
  3. COUMADIN [Suspect]
     Route: 048
     Dates: start: 20110601
  4. VITAMIN B-12 [Concomitant]
     Dosage: FORMULATION:INJECTION
  5. FOLIC ACID [Concomitant]
  6. GLYBURIDE [Concomitant]

REACTIONS (9)
  - MUSCLE SPASMS [None]
  - PANIC ATTACK [None]
  - NAUSEA [None]
  - FATIGUE [None]
  - THROMBOSIS [None]
  - CHOKING SENSATION [None]
  - DYSPNOEA [None]
  - DECREASED APPETITE [None]
  - TEMPERATURE INTOLERANCE [None]
